FAERS Safety Report 12628701 (Version 1)
Quarter: 2016Q3

REPORT INFORMATION
  Report Type: Spontaneous
  Country: US (occurrence: None)
  Receive Date: 20160805
  Receipt Date: 20160805
  Transmission Date: 20161109
  Serious: Yes (Disabling)
  Sender: FDA-Public Use
  Company Number: None

PATIENT
  Age: 63 Year
  Sex: Female
  Weight: 73.48 kg

DRUGS (9)
  1. TUMERIC [Concomitant]
     Active Substance: TURMERIC
  2. ALLEGRA [Concomitant]
     Active Substance: FEXOFENADINE HYDROCHLORIDE
  3. VITAMIN D [Concomitant]
     Active Substance: CHOLECALCIFEROL
  4. CONDROYDENT [Concomitant]
  5. GLUCOSAMINE [Concomitant]
     Active Substance: GLUCOSAMINE
  6. LEVOFLOXACIN, 500 MG [Suspect]
     Active Substance: LEVOFLOXACIN
     Indication: DIVERTICULITIS
     Dosage: 1 TABLET ONCE A DAY
     Route: 048
     Dates: start: 20160605, end: 20160614
  7. SINGULAIR [Concomitant]
     Active Substance: MONTELUKAST SODIUM
  8. CALCIUM [Concomitant]
     Active Substance: CALCIUM
  9. MULTIPLE VITAMIN [Concomitant]
     Active Substance: VITAMINS

REACTIONS (9)
  - Gait disturbance [None]
  - Arthralgia [None]
  - Pain in extremity [None]
  - Middle insomnia [None]
  - Headache [None]
  - Musculoskeletal chest pain [None]
  - Musculoskeletal pain [None]
  - Muscle spasms [None]
  - Movement disorder [None]

NARRATIVE: CASE EVENT DATE: 20160613
